FAERS Safety Report 6348609-2 (Version None)
Quarter: 2009Q3

REPORT INFORMATION
  Report Type: 
  Country: None (occurrence: None)
  Receive Date: 20090911
  Receipt Date: 20090902
  Transmission Date: 20100115
  Serious: Yes (Other)
  Sender: FDA-Public Use
  Company Number: US-PURDUE-USA_2006_0026059

PATIENT
  Age: 74 Year
  Sex: Male

DRUGS (8)
  1. OXYCONTIN [Suspect]
     Indication: PAIN
     Dosage: 30 MG, SEE TEXT
     Dates: start: 20000101
  2. OXYCODONE HYDROCHLORIDE [Suspect]
     Indication: PAIN
     Dosage: 2.5 MG, SEE TEXT
  3. PROTONIX                           /01263201/ [Concomitant]
     Indication: DYSPEPSIA
  4. ATIVAN [Concomitant]
     Indication: SLEEP DISORDER
  5. THYROID HORMONES [Concomitant]
     Indication: THYROID DISORDER
  6. HALCION [Concomitant]
     Indication: INSOMNIA
  7. DOXEPIN HCL [Concomitant]
     Indication: INSOMNIA
  8. RESTORIL                           /00393701/ [Concomitant]
     Indication: INSOMNIA

REACTIONS (19)
  - ABDOMINAL DISCOMFORT [None]
  - ABDOMINAL PAIN UPPER [None]
  - COLITIS [None]
  - DIARRHOEA [None]
  - DRUG EFFECT INCREASED [None]
  - DRUG INEFFECTIVE [None]
  - DRUG TOLERANCE [None]
  - INADEQUATE ANALGESIA [None]
  - INSOMNIA [None]
  - INTENTIONAL DRUG MISUSE [None]
  - MEDICATION RESIDUE [None]
  - MYOCARDIAL INFARCTION [None]
  - PAIN [None]
  - PARANOIA [None]
  - POST-TRAUMATIC STRESS DISORDER [None]
  - PRODUCT QUALITY ISSUE [None]
  - UNEVALUABLE EVENT [None]
  - WEIGHT DECREASED [None]
  - WEIGHT GAIN POOR [None]
